FAERS Safety Report 14431606 (Version 1)
Quarter: 2018Q1

REPORT INFORMATION
  Report Type: Report from Study
  Country: CL (occurrence: CL)
  Receive Date: 20180124
  Receipt Date: 20180124
  Transmission Date: 20180509
  Serious: Yes (Other)
  Sender: FDA-Public Use
  Company Number: CL-ROCHE-2061063

PATIENT

DRUGS (1)
  1. ALTEPLASE. [Suspect]
     Active Substance: ALTEPLASE
     Indication: INTRACARDIAC THROMBUS
     Dosage: DOSE RANGE: 0.1 MG/KG/HOUR UP TO 0.6 MG/KG/HOUR
     Route: 042

REACTIONS (1)
  - Therapy non-responder [Unknown]
